FAERS Safety Report 4676846-1 (Version None)
Quarter: 2005Q2

REPORT INFORMATION
  Report Type: 
  Country: None (occurrence: None)
  Receive Date: 20050527
  Receipt Date: 20050426
  Transmission Date: 20051028
  Serious: Yes (Hospitalization, Other)
  Sender: FDA-Public Use
  Company Number: US-MERCK-0504USA04557

PATIENT
  Age: 34 Year
  Sex: Male
  Weight: 68 kg

DRUGS (31)
  1. CANCIDAS [Suspect]
     Indication: OESOPHAGEAL CANDIDIASIS
     Route: 042
     Dates: start: 20050101
  2. CANCIDAS [Suspect]
     Route: 042
     Dates: end: 20050101
  3. CANCIDAS [Suspect]
     Route: 042
  4. CANCIDAS [Suspect]
     Route: 042
  5. CANCIDAS [Suspect]
     Indication: ORAL CANDIDIASIS
     Route: 042
     Dates: start: 20050101
  6. CANCIDAS [Suspect]
     Route: 042
     Dates: end: 20050101
  7. CANCIDAS [Suspect]
     Route: 042
  8. CANCIDAS [Suspect]
     Route: 042
  9. FLUCONAZOLE [Concomitant]
     Indication: OESOPHAGEAL CANDIDIASIS
     Route: 065
  10. FLUCONAZOLE [Concomitant]
     Indication: ORAL CANDIDIASIS
     Route: 065
  11. ITRACONAZOLE [Concomitant]
     Indication: OESOPHAGEAL CANDIDIASIS
     Route: 065
  12. ITRACONAZOLE [Concomitant]
     Indication: ORAL CANDIDIASIS
     Route: 065
  13. AMINO ACIDS (UNSPECIFIED) AND CARBOHYDRATES (UNSPECIFIED) AND ELECTROL [Concomitant]
     Route: 065
     Dates: end: 20050101
  14. EPZICOM [Concomitant]
     Route: 065
     Dates: start: 20050101
  15. EPOGEN [Concomitant]
     Route: 058
     Dates: end: 20050101
  16. LOMOTIL [Concomitant]
     Route: 065
  17. FLAGYL [Concomitant]
     Route: 065
  18. NYSTATIN [Concomitant]
     Route: 048
     Dates: end: 20050101
  19. [THERAPY UNSPECIFIED] [Concomitant]
     Route: 055
  20. MICRO-K [Concomitant]
     Route: 065
  21. BACTRIM DS [Concomitant]
     Route: 048
  22. VICODIN ES [Concomitant]
     Route: 048
  23. REYATAZ [Concomitant]
     Route: 065
  24. ZOFRAN [Concomitant]
     Route: 065
  25. NEUPOGEN [Concomitant]
     Route: 058
     Dates: end: 20050101
  26. FUZEON [Concomitant]
     Indication: OESOPHAGEAL CANDIDIASIS
     Route: 051
  27. FUZEON [Concomitant]
     Indication: ORAL CANDIDIASIS
     Route: 051
  28. SONATA [Concomitant]
     Route: 065
  29. ANUSOL SUPPOSITORIES/OINTMENT [Concomitant]
     Route: 065
  30. SANDOSTATIN [Concomitant]
     Route: 065
     Dates: end: 20050101
  31. HYPEROL [Concomitant]
     Route: 065

REACTIONS (3)
  - ASPERGILLOMA [None]
  - ORAL CANDIDIASIS [None]
  - THERAPY NON-RESPONDER [None]
